FAERS Safety Report 14124104 (Version 1)
Quarter: 2017Q4

REPORT INFORMATION
  Report Type: Report from Study
  Country: US (occurrence: US)
  Receive Date: 20171025
  Receipt Date: 20171025
  Transmission Date: 20180321
  Serious: Yes (Other)
  Sender: FDA-Public Use
  Company Number: US-ROCHE-1828560

PATIENT

DRUGS (1)
  1. PIRFENIDONE. [Suspect]
     Active Substance: PIRFENIDONE
     Indication: PULMONARY FIBROSIS
     Route: 065

REACTIONS (4)
  - Hepatic enzyme increased [Unknown]
  - Gastrointestinal disorder [Unknown]
  - Pulmonary fibrosis [Unknown]
  - Thrombocytopenia [Recovered/Resolved]
